FAERS Safety Report 14487525 (Version 3)
Quarter: 2018Q1

REPORT INFORMATION
  Report Type: Report from Study
  Country: US (occurrence: US)
  Receive Date: 20180205
  Receipt Date: 20180221
  Transmission Date: 20180509
  Serious: Yes (Hospitalization)
  Sender: FDA-Public Use
  Company Number: US-ASTRAZENECA-2018SE11703

PATIENT
  Age: 30328 Day
  Sex: Female
  Weight: 40.8 kg

DRUGS (10)
  1. LYNPARZA [Suspect]
     Active Substance: OLAPARIB
     Indication: OVARIAN CANCER
     Route: 048
     Dates: start: 20171129, end: 20180115
  2. LYNPARZA [Suspect]
     Active Substance: OLAPARIB
     Indication: FALLOPIAN TUBE CANCER
     Route: 048
  3. LYNPARZA [Suspect]
     Active Substance: OLAPARIB
     Indication: OVARIAN CANCER
     Route: 048
  4. LYNPARZA [Suspect]
     Active Substance: OLAPARIB
     Indication: OVARIAN CANCER
     Route: 048
  5. LYNPARZA [Suspect]
     Active Substance: OLAPARIB
     Indication: FALLOPIAN TUBE CANCER
     Route: 048
     Dates: start: 20171129, end: 20180115
  6. IRON [Concomitant]
     Active Substance: IRON
     Indication: ANAEMIA
     Route: 048
     Dates: start: 20180110
  7. SYNTHROID [Concomitant]
     Active Substance: LEVOTHYROXINE SODIUM
     Indication: HYPOTHYROIDISM
     Route: 048
  8. LYNPARZA [Suspect]
     Active Substance: OLAPARIB
     Indication: FALLOPIAN TUBE CANCER
     Route: 048
  9. LYNPARZA [Suspect]
     Active Substance: OLAPARIB
     Indication: FALLOPIAN TUBE CANCER
     Route: 048
     Dates: start: 20171129, end: 20180115
  10. LYNPARZA [Suspect]
     Active Substance: OLAPARIB
     Indication: OVARIAN CANCER
     Route: 048
     Dates: start: 20171129, end: 20180115

REACTIONS (5)
  - Weight decreased [Recovering/Resolving]
  - Pneumonitis [Unknown]
  - Syncope [Unknown]
  - Drug hypersensitivity [Not Recovered/Not Resolved]
  - Malaise [Unknown]

NARRATIVE: CASE EVENT DATE: 20171220
